FAERS Safety Report 5341440-6 (Version None)
Quarter: 2007Q2

REPORT INFORMATION
  Report Type: 
  Country: None (occurrence: None)
  Receive Date: 20070530
  Receipt Date: 20070517
  Transmission Date: 20071010
  Serious: Yes (Life-Threatening, Hospitalization, Other)
  Sender: FDA-Public Use
  Company Number: GXKR2007GB04467

PATIENT
  Age: 90 Year
  Sex: Female
  Weight: 70 kg

DRUGS (8)
  1. DOXYCYCLINE [Suspect]
     Dosage: 100 MG, ORAL
     Route: 048
     Dates: start: 20070309, end: 20070311
  2. ACETYLSALICYLIC ACID SRT [Concomitant]
  3. BISOPROLOL FUMARATE [Concomitant]
  4. DIGOXIN [Concomitant]
  5. ENALAPRIL MALEATE [Concomitant]
  6. FUROSEMIDE [Concomitant]
  7. PAROXETINE [Concomitant]
  8. RAMIPRIL [Concomitant]

REACTIONS (3)
  - AGRANULOCYTOSIS [None]
  - ANAEMIA [None]
  - DIARRHOEA [None]
